FAERS Safety Report 6300947-5 (Version None)
Quarter: 2009Q3

REPORT INFORMATION
  Report Type: 
  Country: None (occurrence: None)
  Receive Date: 20090807
  Receipt Date: 20090514
  Transmission Date: 20100115
  Serious: Yes (Death)
  Sender: FDA-Public Use
  Company Number: US-ELI_LILLY_AND_COMPANY-US200905003261

PATIENT
  Age: 25 Year
  Sex: Female

DRUGS (2)
  1. ZYPREXA [Suspect]
  2. PROZAC [Suspect]
     Dosage: 80 MG, UNK

REACTIONS (1)
  - COMPLETED SUICIDE [None]
